FAERS Safety Report 23038030 (Version 1)
Quarter: 2023Q4

REPORT INFORMATION
  Report Type: Spontaneous
  Country: US (occurrence: US)
  Receive Date: 20231006
  Receipt Date: 20231006
  Transmission Date: 20240110
  Serious: Yes (Life-Threatening, Other)
  Sender: FDA-Public Use
  Company Number: US-PFIZER INC-PV202300165623

PATIENT
  Age: 21 Year
  Sex: Female

DRUGS (9)
  1. PIPERACILLIN SODIUM\TAZOBACTAM SODIUM [Suspect]
     Active Substance: PIPERACILLIN SODIUM\TAZOBACTAM SODIUM
     Indication: Myometritis
     Dosage: UNK
  2. PIPERACILLIN SODIUM\TAZOBACTAM SODIUM [Suspect]
     Active Substance: PIPERACILLIN SODIUM\TAZOBACTAM SODIUM
     Indication: Toxic shock syndrome
  3. PIPERACILLIN SODIUM\TAZOBACTAM SODIUM [Suspect]
     Active Substance: PIPERACILLIN SODIUM\TAZOBACTAM SODIUM
     Indication: Streptococcal infection
  4. CLINDAMYCIN [Suspect]
     Active Substance: CLINDAMYCIN
     Indication: Myometritis
     Dosage: UNK
  5. CLINDAMYCIN [Suspect]
     Active Substance: CLINDAMYCIN
     Indication: Toxic shock syndrome
  6. CLINDAMYCIN [Suspect]
     Active Substance: CLINDAMYCIN
     Indication: Streptococcal infection
  7. DAPTOMYCIN [Suspect]
     Active Substance: DAPTOMYCIN
     Indication: Myometritis
     Dosage: UNK
  8. DAPTOMYCIN [Suspect]
     Active Substance: DAPTOMYCIN
     Indication: Toxic shock syndrome
  9. DAPTOMYCIN [Suspect]
     Active Substance: DAPTOMYCIN
     Indication: Streptococcal infection

REACTIONS (1)
  - Drug ineffective [Unknown]
